FAERS Safety Report 5951973-7 (Version None)
Quarter: 2008Q4

REPORT INFORMATION
  Report Type: 
  Country: None (occurrence: None)
  Receive Date: 20081113
  Receipt Date: 20071011
  Transmission Date: 20090506
  Serious: No
  Sender: FDA-Public Use
  Company Number: A0687172A

PATIENT
  Age: 67 Year
  Sex: Female

DRUGS (4)
  1. COREG [Suspect]
     Dosage: 12.5MG PER DAY
     Route: 048
     Dates: start: 20061001
  2. ALTACE [Concomitant]
  3. NEXIUM [Concomitant]
  4. XALATAN [Concomitant]

REACTIONS (2)
  - COUGH [None]
  - DYSPHONIA [None]
